FAERS Safety Report 14033088 (Version 6)
Quarter: 2021Q1

REPORT INFORMATION
  Report Type: Spontaneous
  Country: US (occurrence: US)
  Receive Date: 20171003
  Receipt Date: 20210128
  Transmission Date: 20210419
  Serious: Yes (Other)
  Sender: FDA-Public Use
  Company Number: US-PFIZER INC-2017423759

PATIENT
  Age: 61 Year
  Sex: Female
  Weight: 62.14 kg

DRUGS (4)
  1. VENLAFAXINE HCL [Suspect]
     Active Substance: VENLAFAXINE HYDROCHLORIDE
     Indication: ANXIETY
  2. VENLAFAXINE HCL [Suspect]
     Active Substance: VENLAFAXINE HYDROCHLORIDE
     Indication: DEPRESSION
     Dosage: 150 MG, DAILY (75 MG / QTY 60 / DAY SUPPLY 30)
  3. SYNTHROID [Concomitant]
     Active Substance: LEVOTHYROXINE SODIUM
     Indication: THYROID DISORDER
     Dosage: UNK
  4. LORAZEPAM. [Concomitant]
     Active Substance: LORAZEPAM
     Dosage: UNK

REACTIONS (11)
  - Feeling abnormal [Unknown]
  - Suicidal ideation [Unknown]
  - Drug ineffective [Unknown]
  - Insomnia [Unknown]
  - Depression [Unknown]
  - Confusional state [Unknown]
  - Memory impairment [Unknown]
  - Tremor [Unknown]
  - Abnormal dreams [Unknown]
  - Nervousness [Unknown]
  - Dizziness [Unknown]
